FAERS Safety Report 7711894-6 (Version None)
Quarter: 2011Q3

REPORT INFORMATION
  Report Type: 
  Country: None (occurrence: None)
  Receive Date: 20110826
  Receipt Date: 20110815
  Transmission Date: 20111222
  Serious: Yes (Hospitalization)
  Sender: FDA-Public Use
  Company Number: JP-BRISTOL-MYERS SQUIBB COMPANY-15972144

PATIENT
  Age: 58 Year
  Sex: Female

DRUGS (2)
  1. WARFARIN SODIUM [Suspect]
  2. HEPARIN SODIUM [Suspect]
     Dosage: 1DF: 10000U.

REACTIONS (2)
  - THROMBOSIS IN DEVICE [None]
  - HEPARIN-INDUCED THROMBOCYTOPENIA [None]
